FAERS Safety Report 5934696-X (Version None)
Quarter: 2008Q4

REPORT INFORMATION
  Report Type: 
  Country: None (occurrence: None)
  Receive Date: 20081029
  Receipt Date: 20081028
  Transmission Date: 20090506
  Serious: Yes (Other)
  Sender: FDA-Public Use
  Company Number: FR-RB-005599-08

PATIENT
  Sex: Female

DRUGS (1)
  1. SUBUTEX [Suspect]
     Route: 060

REACTIONS (4)
  - ANXIETY [None]
  - SUICIDAL IDEATION [None]
  - TENSION [None]
  - WITHDRAWAL SYNDROME [None]
